FAERS Safety Report 11677438 (Version 1)
Quarter: 2015Q4

REPORT INFORMATION
  Report Type: Spontaneous
  Country: US (occurrence: US)
  Receive Date: 20151027
  Receipt Date: 20151027
  Transmission Date: 20160304
  Serious: No
  Sender: FDA-Public Use
  Company Number: US-ELI_LILLY_AND_COMPANY-US201009002239

PATIENT
  Sex: Female

DRUGS (4)
  1. FORTEO [Suspect]
     Active Substance: TERIPARATIDE
     Dosage: 20 UG, DAILY (1/D)
  2. ENBREL [Concomitant]
     Active Substance: ETANERCEPT
  3. PERCOCET [Concomitant]
     Active Substance: ACETAMINOPHEN\OXYCODONE HYDROCHLORIDE
  4. FORTEO [Suspect]
     Active Substance: TERIPARATIDE
     Indication: OSTEOPOROSIS
     Dosage: 20 UG, DAILY (1/D)
     Dates: start: 20100607

REACTIONS (7)
  - Fatigue [Unknown]
  - Constipation [Unknown]
  - Pain in extremity [Not Recovered/Not Resolved]
  - Dizziness [Unknown]
  - Abasia [Unknown]
  - Injection site pain [Unknown]
  - Gastroenteritis viral [Unknown]
